FAERS Safety Report 10579490 (Version 3)
Quarter: 2015Q3

REPORT INFORMATION
  Report Type: Spontaneous
  Country: US (occurrence: US)
  Receive Date: 20141112
  Receipt Date: 20150708
  Transmission Date: 20151125
  Serious: Yes (Hospitalization)
  Sender: FDA-Public Use
  Company Number: US-BAYER-2014-166491

PATIENT
  Age: 29 Year
  Sex: Female
  Weight: 49.89 kg

DRUGS (2)
  1. PERCOCET [Concomitant]
     Active Substance: ACETAMINOPHEN\OXYCODONE HYDROCHLORIDE
  2. MIRENA [Suspect]
     Active Substance: LEVONORGESTREL
     Indication: CONTRACEPTION
     Dosage: 20 MCG/24HR, CONT
     Route: 015
     Dates: start: 20120307, end: 20130128

REACTIONS (7)
  - Device difficult to use [None]
  - Uterine perforation [None]
  - Abdominal pain upper [None]
  - Procedural pain [None]
  - Injury [None]
  - Genital pain [None]
  - Device dislocation [None]

NARRATIVE: CASE EVENT DATE: 20130128
